FAERS Safety Report 6121933-4 (Version None)
Quarter: 2009Q1

REPORT INFORMATION
  Report Type: 
  Country: None (occurrence: None)
  Receive Date: 20090317
  Receipt Date: 20090312
  Transmission Date: 20090719
  Serious: Yes (Death)
  Sender: FDA-Public Use
  Company Number: JP-MERCK-0903USA02219

PATIENT
  Age: 80 Year
  Sex: Female

DRUGS (5)
  1. SINGULAIR [Suspect]
     Route: 048
     Dates: end: 20090303
  2. HYZAAR [Concomitant]
     Route: 048
     Dates: start: 20071219, end: 20090217
  3. WARFARIN [Suspect]
     Route: 048
     Dates: end: 20090303
  4. SELOKEN [Suspect]
     Route: 048
     Dates: end: 20090303
  5. OMEPRAZOLE [Suspect]
     Route: 048
     Dates: end: 20090303

REACTIONS (1)
  - INTERSTITIAL LUNG DISEASE [None]
